FAERS Safety Report 23544080 (Version 2)
Quarter: 2024Q2

REPORT INFORMATION
  Report Type: Report from Study
  Country: AU (occurrence: AU)
  Receive Date: 20240220
  Receipt Date: 20240410
  Transmission Date: 20240716
  Serious: Yes (Hospitalization)
  Sender: FDA-Public Use
  Company Number: AU-ABBVIE-5640757

PATIENT
  Sex: Male

DRUGS (1)
  1. HUMIRA [Suspect]
     Active Substance: ADALIMUMAB
     Indication: Crohn^s disease
     Route: 058
     Dates: start: 20240118

REACTIONS (8)
  - Shock [Recovering/Resolving]
  - Crohn^s disease [Recovering/Resolving]
  - Swelling [Recovering/Resolving]
  - Arthropod bite [Recovering/Resolving]
  - Fatigue [Recovered/Resolved]
  - Hyperhidrosis [Recovered/Resolved]
  - Pyrexia [Recovered/Resolved]
  - Unevaluable event [Recovering/Resolving]

NARRATIVE: CASE EVENT DATE: 20240101
